FAERS Safety Report 7231620-7 (Version None)
Quarter: 2011Q1

REPORT INFORMATION
  Report Type: 
  Country: None (occurrence: None)
  Receive Date: 20110118
  Receipt Date: 20110113
  Transmission Date: 20110831
  Serious: Yes (Hospitalization)
  Sender: FDA-Public Use
  Company Number: JP-ABBOTT-10P-087-0693185-00

PATIENT
  Sex: Female

DRUGS (11)
  1. HUMIRA [Suspect]
     Indication: RHEUMATOID ARTHRITIS
     Route: 058
     Dates: start: 20090512, end: 20101129
  2. TELMISARTAN [Concomitant]
     Indication: PRODUCT USED FOR UNKNOWN INDICATION
     Route: 048
  3. MAGNESIUM OXIDE [Concomitant]
     Indication: PRODUCT USED FOR UNKNOWN INDICATION
     Route: 048
  4. PYRIDOXAL PHOSPHATE [Concomitant]
     Indication: ADVERSE DRUG REACTION
  5. ALFACALCIDOL [Concomitant]
     Indication: OSTEOPOROSIS PROPHYLAXIS
  6. OMEPRAZOLE [Concomitant]
     Indication: PROPHYLAXIS
     Route: 048
  7. ISONIAZID [Concomitant]
     Indication: ANTIBIOTIC PROPHYLAXIS
  8. AMLODIPINE BESYLATE [Concomitant]
     Indication: HYPERTENSION
     Route: 048
  9. PYRIDOXAL PHOSPHATE [Concomitant]
     Indication: PROPHYLAXIS
  10. OMEPRAZOLE [Concomitant]
     Indication: ADVERSE DRUG REACTION
  11. CELECOXIB [Concomitant]
     Indication: RHEUMATOID ARTHRITIS
     Route: 048

REACTIONS (4)
  - ASTHENIA [None]
  - PHARYNGITIS [None]
  - PYREXIA [None]
  - INFECTION [None]
